FAERS Safety Report 8171850-3 (Version None)
Quarter: 2012Q1

REPORT INFORMATION
  Report Type: 
  Country: None (occurrence: None)
  Receive Date: 20120228
  Receipt Date: 20120222
  Transmission Date: 20120608
  Serious: Yes (Other)
  Sender: FDA-Public Use
  Company Number: BR-ABBOTT-11P-020-0733409-00

PATIENT
  Sex: Female
  Weight: 78 kg

DRUGS (5)
  1. DEFLAZACORT [Concomitant]
     Indication: DRUG THERAPY
     Route: 048
     Dates: start: 20070101, end: 20110201
  2. HUMIRA [Suspect]
     Indication: RHEUMATOID ARTHRITIS
     Route: 058
     Dates: start: 20110428, end: 20110601
  3. CORTICOSTEROIDS [Concomitant]
     Indication: PRODUCT USED FOR UNKNOWN INDICATION
     Dates: start: 20070101
  4. PREDNISONE TAB [Concomitant]
     Indication: DRUG THERAPY
     Route: 048
     Dates: start: 20070101, end: 20110201
  5. LEVOTHYROXINE SODIUM [Concomitant]
     Indication: HYPOTHYROIDISM
     Route: 048
     Dates: start: 19960101

REACTIONS (17)
  - SJOGREN'S SYNDROME [None]
  - SYNOVIAL CYST [None]
  - PAIN [None]
  - GAIT DISTURBANCE [None]
  - LIGAMENT INJURY [None]
  - MOBILITY DECREASED [None]
  - OEDEMA PERIPHERAL [None]
  - BEDRIDDEN [None]
  - DRY EYE [None]
  - SKIN EXFOLIATION [None]
  - JOINT SWELLING [None]
  - WEIGHT DECREASED [None]
  - DRY SKIN [None]
  - LOCAL SWELLING [None]
  - ARTHROPATHY [None]
  - ARTHRITIS [None]
  - DRY MOUTH [None]
